FAERS Safety Report 23321622 (Version 3)
Quarter: 2025Q4

REPORT INFORMATION
  Report Type: Spontaneous
  Country: US (occurrence: US)
  Receive Date: 20231220
  Receipt Date: 20251009
  Transmission Date: 20260118
  Serious: Yes (Other)
  Sender: PFIZER
  Company Number: US-PFIZER INC-PV202300150459

PATIENT
  Age: 75 Year
  Sex: Female

DRUGS (5)
  1. IBRANCE [Suspect]
     Active Substance: PALBOCICLIB
     Indication: Breast cancer female
     Dosage: DAILY ON DAYS 1-21 OF EACH 28-DAY CYCLE
     Route: 048
  2. IBRANCE [Suspect]
     Active Substance: PALBOCICLIB
     Indication: Malignant pleural effusion
     Dosage: DAILY ON DAYS 1-21 OF EACH 28-DAY CYCLE
     Route: 048
  3. NEURONTIN [Concomitant]
     Active Substance: GABAPENTIN
     Dosage: EVERY EVENING
     Route: 048
     Dates: start: 20230623
  4. ADVIL [Concomitant]
     Active Substance: IBUPROFEN
     Indication: Pain
     Dosage: EVERY 6 (SIX) HOURS AS NEEDED
     Route: 048
     Dates: start: 20230118
  5. NEXIUM I.V. [Concomitant]
     Active Substance: ESOMEPRAZOLE SODIUM
     Dosage: BEFORE BREAKFAST
     Route: 048
     Dates: start: 20230118

REACTIONS (4)
  - Malignant neoplasm progression [Unknown]
  - Malignant pleural effusion [Unknown]
  - Off label use [Unknown]
  - Product use issue [Unknown]
